FAERS Safety Report 10504662 (Version 1)
Quarter: 2014Q4

REPORT INFORMATION
  Report Type: Spontaneous
  Country: NL (occurrence: None)
  Receive Date: 20141006
  Receipt Date: 20141006
  Transmission Date: 20150528
  Serious: Yes (Hospitalization)
  Sender: FDA-Public Use
  Company Number: 2014271350

PATIENT
  Age: 32 Year
  Sex: Female

DRUGS (3)
  1. FRAGMIN [Suspect]
     Active Substance: DALTEPARIN SODIUM
     Dosage: A DAY
     Dates: start: 20120722, end: 20140813
  2. ACENOCOUMAROL (ACENOCOUMAROL) [Concomitant]
  3. MOLAXOLE (MACROGOL, POTASSIUM CHLORIDE SODIUM BICARBONATE, SODIUM CHLORIDE) [Concomitant]

REACTIONS (3)
  - Back pain [None]
  - Spinal compression fracture [None]
  - Body height decreased [None]

NARRATIVE: CASE EVENT DATE: 20140813
